FAERS Safety Report 4663547-9 (Version None)
Quarter: 2005Q2

REPORT INFORMATION
  Report Type: 
  Country: None (occurrence: None)
  Receive Date: 20050517
  Receipt Date: 20050508
  Transmission Date: 20051028
  Serious: Yes (Hospitalization)
  Sender: FDA-Public Use
  Company Number: KW-GLAXOSMITHKLINE-B0380952A

PATIENT
  Age: 26 Year
  Sex: Male
  Weight: 30 kg

DRUGS (1)
  1. PAROXETINE HCL [Suspect]
     Indication: MAJOR DEPRESSION
     Dosage: 20MG PER DAY
     Route: 048
     Dates: start: 20050315, end: 20050510

REACTIONS (1)
  - DRUG SCREEN FALSE POSITIVE [None]
